FAERS Safety Report 9441751 (Version 4)
Quarter: 2014Q2

REPORT INFORMATION
  Report Type: Spontaneous
  Country: GB (occurrence: GB)
  Receive Date: 20130806
  Receipt Date: 20140402
  Transmission Date: 20141212
  Serious: Yes (Hospitalization)
  Sender: FDA-Public Use
  Company Number: GB-ROCHE-1257463

PATIENT
  Age: 6 Year
  Sex: Female
  Weight: 19 kg

DRUGS (13)
  1. XOLAIR [Suspect]
     Indication: ASTHMA
     Route: 058
     Dates: start: 20130423
  2. XOLAIR [Suspect]
     Route: 058
     Dates: start: 20130522, end: 20130522
  3. FLUTICASONE [Concomitant]
  4. SALBUTAMOL [Concomitant]
  5. ATROVENT [Concomitant]
     Route: 065
  6. KETOTIFEN [Concomitant]
     Route: 065
  7. DOMPERIDONE [Concomitant]
     Route: 065
  8. CETIRIZINE [Concomitant]
     Route: 065
  9. AVAMYS [Concomitant]
     Dosage: NASAL SPRAY
     Route: 065
  10. OMEPRAZOLE [Concomitant]
     Route: 065
  11. GAVISCON LIQUID (UNITED STATES) [Concomitant]
     Dosage: LIQUID
     Route: 065
  12. HYDROCORTISONE [Concomitant]
  13. IPRATROPIUM BROMIDE [Concomitant]
     Route: 065

REACTIONS (2)
  - Vomiting [Recovered/Resolved]
  - Headache [Recovered/Resolved]
